FAERS Safety Report 15719445 (Version 2)
Quarter: 2019Q2

REPORT INFORMATION
  Report Type: Spontaneous
  Country: NL (occurrence: NL)
  Receive Date: 20181213
  Receipt Date: 20190607
  Transmission Date: 20190711
  Serious: Yes (Death, Other)
  Sender: FDA-Public Use
  Company Number: PHHY2018NL179970

PATIENT
  Age: 71 Year
  Sex: Male

DRUGS (11)
  1. IRINOTECAN [Concomitant]
     Active Substance: IRINOTECAN
     Indication: COLON CANCER STAGE III
     Dosage: UNK
     Route: 065
  2. CERITINIB [Concomitant]
     Active Substance: CERITINIB
     Indication: COLON CANCER STAGE III
     Dosage: 600 MG, UNK (80% OF THE NORMAL DOSAGE)
     Route: 065
  3. CAPECITABINE. [Suspect]
     Active Substance: CAPECITABINE
     Indication: NON-SMALL CELL LUNG CANCER
     Dosage: 1000 MG/M2, QD (D1-14 IN THREE WEEKLY COURSES FOR IT SIGMOID CARCINOMA)
     Route: 065
  4. CARBOPLATIN. [Concomitant]
     Active Substance: CARBOPLATIN
     Indication: NON-SMALL CELL LUNG CANCER STAGE IV
  5. TAS 102 [Concomitant]
     Active Substance: TIPIRACIL HYDROCHLORIDE\TRIFLURIDINE
     Indication: PRODUCT USED FOR UNKNOWN INDICATION
     Dosage: UNK
     Route: 065
  6. OXALIPLATIN. [Suspect]
     Active Substance: OXALIPLATIN
     Indication: COLON CANCER STAGE III
     Dosage: 130 MG/M2, Q3W
     Route: 065
  7. PEMETREXED. [Concomitant]
     Active Substance: PEMETREXED
     Indication: NON-SMALL CELL LUNG CANCER STAGE IV
     Dosage: UNK
     Route: 065
  8. TRIFLURIDINE. [Concomitant]
     Active Substance: TRIFLURIDINE
     Indication: PRODUCT USED FOR UNKNOWN INDICATION
     Dosage: UNK
     Route: 065
  9. CAPECITABINE. [Suspect]
     Active Substance: CAPECITABINE
     Indication: COLON CANCER
  10. CARBOPLATIN. [Concomitant]
     Active Substance: CARBOPLATIN
     Indication: COLON CANCER STAGE III
     Dosage: UNK
     Route: 065
  11. IRINOTECAN [Concomitant]
     Active Substance: IRINOTECAN
     Indication: COLON CANCER STAGE III

REACTIONS (1)
  - Palmar-plantar erythrodysaesthesia syndrome [Fatal]
